FAERS Safety Report 6803312-7 (Version None)
Quarter: 2010Q2

REPORT INFORMATION
  Report Type: 
  Country: None (occurrence: None)
  Receive Date: 20100628
  Receipt Date: 20100617
  Transmission Date: 20101027
  Serious: Yes (Death, Disabling, Other)
  Sender: FDA-Public Use
  Company Number: GB-GENZYME-CLOF-1000939

PATIENT
  Sex: Male

DRUGS (10)
  1. EVOLTRA [Suspect]
     Indication: ACUTE MYELOID LEUKAEMIA
     Dosage: 38 MG, QDX5
     Route: 042
     Dates: start: 20080611, end: 20080615
  2. EVOLTRA [Suspect]
     Dosage: 38 MG, QDX5
     Route: 042
     Dates: start: 20080715, end: 20080719
  3. DAUNORUBICIN HCL [Suspect]
     Indication: ACUTE MYELOID LEUKAEMIA
     Dosage: 97.5 MG, ONCE
     Route: 042
     Dates: start: 20080611, end: 20080611
  4. DAUNORUBICIN HCL [Suspect]
     Dosage: 97.5 MG, ONCE
     Route: 042
     Dates: start: 20080613, end: 20080613
  5. DAUNORUBICIN HCL [Suspect]
     Dosage: 97.5 MG, ONCE
     Route: 042
     Dates: start: 20080615, end: 20080615
  6. DAUNORUBICIN HCL [Suspect]
     Dosage: 97.5 MG, ONCE
     Route: 042
     Dates: start: 20080715, end: 20080715
  7. DAUNORUBICIN HCL [Suspect]
     Dosage: 97.5 MG, ONCE
     Route: 042
     Dates: start: 20080717, end: 20080717
  8. DAUNORUBICIN HCL [Suspect]
     Dosage: 97.5 MG, ONCE
     Route: 042
     Dates: start: 20080719, end: 20080719
  9. LEVOTHYROXINE SODIUM [Concomitant]
     Indication: HYPOTHYROIDISM
     Dosage: 75 MCG, UNK
  10. ATENOLOL [Concomitant]
     Indication: HYPERTENSION
     Dosage: UNK

REACTIONS (4)
  - FEBRILE NEUTROPENIA [None]
  - NEUTROPENIC SEPSIS [None]
  - PANCYTOPENIA [None]
  - THROMBOCYTOPENIA [None]
